FAERS Safety Report 18448980 (Version 1)
Quarter: 2020Q4

REPORT INFORMATION
  Report Type: Spontaneous
  Country: FR (occurrence: FR)
  Receive Date: 20201030
  Receipt Date: 20201030
  Transmission Date: 20210114
  Serious: Yes (Other)
  Sender: FDA-Public Use
  Company Number: FR-PFIZER INC-2020415968

PATIENT
  Age: 37 Year
  Sex: Male
  Weight: 72 kg

DRUGS (2)
  1. CLINDAMYCIN HCL [Suspect]
     Active Substance: CLINDAMYCIN HYDROCHLORIDE
     Indication: INFECTION
     Dosage: 1800 MG, 1X/DAY
     Route: 048
     Dates: start: 20200611, end: 20200826
  2. LEVOFLOXACINE [LEVOFLOXACIN] [Suspect]
     Active Substance: LEVOFLOXACIN
     Indication: INFECTION
     Dosage: 750 MG, 1X/DAY
     Route: 048
     Dates: start: 20200611, end: 20200826

REACTIONS (5)
  - Fungal infection [Recovering/Resolving]
  - Photosensitivity reaction [Recovering/Resolving]
  - Diarrhoea [Recovering/Resolving]
  - Tendonitis [Recovering/Resolving]
  - Off label use [Unknown]

NARRATIVE: CASE EVENT DATE: 20200611
